FAERS Safety Report 17818285 (Version 1)
Quarter: 2020Q2

REPORT INFORMATION
  Report Type: Spontaneous
  Country: IT (occurrence: IT)
  Receive Date: 20200522
  Receipt Date: 20200522
  Transmission Date: 20200714
  Serious: Yes (Life-Threatening, Hospitalization)
  Sender: FDA-Public Use
  Company Number: IT-ASTRAZENECA-2020SE65259

PATIENT
  Age: 73 Year
  Sex: Female

DRUGS (1)
  1. QUETIAPINE. [Suspect]
     Active Substance: QUETIAPINE
     Dosage: 120.0DF ONCE/SINGLE ADMINISTRATION
     Route: 048

REACTIONS (7)
  - Intentional overdose [Unknown]
  - Hypotension [Unknown]
  - Bezoar [Recovered/Resolved]
  - Gastric perforation [Unknown]
  - Coma [Unknown]
  - Electrocardiogram QT prolonged [Unknown]
  - Tachycardia [Unknown]
